FAERS Safety Report 6026706-9 (Version None)
Quarter: 2008Q4

REPORT INFORMATION
  Report Type: 
  Country: None (occurrence: None)
  Receive Date: 20081222
  Receipt Date: 20080925
  Transmission Date: 20090506
  Serious: No
  Sender: FDA-Public Use
  Company Number: US-WYE-H06147208

PATIENT
  Age: 67 Year
  Sex: Female
  Weight: 82.63 kg

DRUGS (6)
  1. PRISTIQ [Suspect]
     Indication: DEPRESSION
     Dosage: 50 MG 1X PER 1 DAY, ORAL
     Route: 048
     Dates: start: 20080901
  2. LASIX [Concomitant]
  3. PREMARIN [Concomitant]
  4. ALLEGRA [Concomitant]
  5. ATENOLOL [Concomitant]
  6. ATIVAN [Concomitant]

REACTIONS (3)
  - CONDITION AGGRAVATED [None]
  - DYSPNOEA [None]
  - OEDEMA PERIPHERAL [None]
